FAERS Safety Report 10978597 (Version 1)
Quarter: 2015Q2

REPORT INFORMATION
  Report Type: Report from Study
  Country: US (occurrence: US)
  Receive Date: 20150402
  Receipt Date: 20150402
  Transmission Date: 20150821
  Serious: Yes (Other)
  Sender: FDA-Public Use
  Company Number: US-BEH-2015049703

PATIENT
  Sex: Male

DRUGS (1)
  1. PRIVIGEN [Suspect]
     Active Substance: HUMAN IMMUNOGLOBULIN G
     Indication: PRODUCT USED FOR UNKNOWN INDICATION
     Dosage: ??-DEC-2014

REACTIONS (5)
  - Skin discolouration [Unknown]
  - Adverse reaction [Unknown]
  - Granuloma skin [Unknown]
  - Skin texture abnormal [Unknown]
  - Rash [Unknown]

NARRATIVE: CASE EVENT DATE: 201501
